FAERS Safety Report 26205920 (Version 1)
Quarter: 2025Q4

REPORT INFORMATION
  Report Type: Spontaneous
  Country: US (occurrence: US)
  Receive Date: 20251229
  Receipt Date: 20251229
  Transmission Date: 20260117
  Serious: Yes (Hospitalization, Other)
  Sender: JUBILANT
  Company Number: None

PATIENT
  Age: 64 Year
  Sex: Male
  Weight: 61.7 kg

DRUGS (14)
  1. PANTOPRAZOLE SODIUM [Suspect]
     Active Substance: PANTOPRAZOLE SODIUM
     Indication: Product used for unknown indication
     Dosage: 20 MG, ONCE PER DAY (HE HAD BEEN ON PROTON PUMP INHIBITOR (PPI) THERAPY FOR MORE THAN FIVE YEARS)
     Route: 065
  2. CRESTOR [Suspect]
     Active Substance: ROSUVASTATIN CALCIUM
     Indication: Coronary artery disease
     Dosage: 20 MG, ONCE PER DAY
     Route: 065
     Dates: start: 20230530, end: 20231016
  3. CRESTOR [Suspect]
     Active Substance: ROSUVASTATIN CALCIUM
     Dosage: 40 MG, ONCE PER DAY
     Route: 065
     Dates: start: 20231016, end: 20250507
  4. ASCORBIC ACID [Concomitant]
     Active Substance: ASCORBIC ACID
     Indication: Product used for unknown indication
     Dosage: 1000 MG, ONCE PER DAY
     Route: 065
  5. CARVEDILOL [Concomitant]
     Active Substance: CARVEDILOL
     Indication: Product used for unknown indication
     Dosage: 3.125 MG, 2 TIMES PER DAY
     Route: 065
  6. DIAZEPAM [Concomitant]
     Active Substance: DIAZEPAM
     Indication: Product used for unknown indication
     Dosage: 5 MG, UNK (AS NECESSARY)
     Route: 065
  7. BUDESONIDE [Concomitant]
     Active Substance: BUDESONIDE
     Indication: Product used for unknown indication
     Dosage: 2 MG, 2 TIMES PER DAY
     Route: 065
  8. FISH OIL [Concomitant]
     Active Substance: FISH OIL
     Indication: Product used for unknown indication
     Dosage: 1 G, ONCE PER DAY
     Route: 065
  9. FLUTICASONE [Concomitant]
     Active Substance: FLUTICASONE
     Indication: Product used for unknown indication
     Dosage: 220 ?G, 2 TIMES PER DAY (INHALER)
  10. FLUTICASONE [Concomitant]
     Active Substance: FLUTICASONE
     Dosage: UNK, ONCE PER DAY (ONE SPRAY EACH NOSTRIL )
     Route: 045
  11. GABAPENTIN [Concomitant]
     Active Substance: GABAPENTIN
     Indication: Product used for unknown indication
     Dosage: 100 MG, 3 TIMES PER DAY
     Route: 065
  12. OLOPATADINE [Concomitant]
     Active Substance: OLOPATADINE
     Indication: Product used for unknown indication
     Dosage: UNK (OPHTHALMIC SOLUTION 0.1%), 2 TIMES PER DAY
  13. RIMEGEPANT [Concomitant]
     Active Substance: RIMEGEPANT
     Indication: Product used for unknown indication
     Dosage: 75 MG, UNK (EVERY OTHER DAY)
     Route: 065
  14. ZINC SULFATE [Concomitant]
     Active Substance: ZINC SULFATE
     Indication: Product used for unknown indication
     Dosage: 50 MG, ONCE PER DAY
     Route: 065

REACTIONS (1)
  - Acute kidney injury [Recovered/Resolved]

NARRATIVE: CASE EVENT DATE: 20240101
